FAERS Safety Report 10332609 (Version 2)
Quarter: 2014Q3

REPORT INFORMATION
  Report Type: Spontaneous
  Country: US (occurrence: US)
  Receive Date: 20140722
  Receipt Date: 20140722
  Transmission Date: 20150326
  Serious: No
  Sender: FDA-Public Use
  Company Number: US-UNITED THERAPEUTICS-UTC-041762

PATIENT
  Sex: Female
  Weight: 39.46 kg

DRUGS (4)
  1. TYVASO [Suspect]
     Active Substance: TREPROSTINIL
     Dates: start: 20131121
  2. ADCIRCA [Concomitant]
     Active Substance: TADALAFIL
  3. LETAIRIS [Suspect]
     Active Substance: AMBRISENTAN
     Dates: start: 20131024
  4. LETAIRIS [Suspect]
     Active Substance: AMBRISENTAN

REACTIONS (10)
  - Choking [Not Recovered/Not Resolved]
  - Bronchiolitis [Unknown]
  - Atrial fibrillation [Unknown]
  - Dyspnoea [Unknown]
  - Cough [Not Recovered/Not Resolved]
  - Chest discomfort [Unknown]
  - Impaired driving ability [Unknown]
  - Hypotension [Unknown]
  - Palpitations [Unknown]
  - Walking distance test abnormal [Unknown]

NARRATIVE: CASE EVENT DATE: 2013
